FAERS Safety Report 9349936 (Version 6)
Quarter: 2014Q2

REPORT INFORMATION
  Report Type: Report from Study
  Country: CA (occurrence: CA)
  Receive Date: 20130614
  Receipt Date: 20140506
  Transmission Date: 20141212
  Serious: Yes (Hospitalization)
  Sender: FDA-Public Use
  Company Number: PHHO2013CA007600

PATIENT
  Age: 51 Year
  Sex: Female
  Weight: 98 kg

DRUGS (4)
  1. FTY 720 [Suspect]
     Indication: MULTIPLE SCLEROSIS
     Dosage: 0.5 MG, QD
     Route: 048
     Dates: start: 20110620, end: 20130605
  2. CELEXA [Concomitant]
     Indication: DEPRESSION
     Dosage: 40 MG, QD
     Route: 048
     Dates: start: 20100324, end: 20130604
  3. LYRICA [Concomitant]
     Indication: MUSCULOSKELETAL PAIN
     Dosage: 75 MG, BID
     Route: 048
     Dates: start: 20120306
  4. ALEVE [Concomitant]
     Indication: PAIN
     Dosage: 1 DF, PRN
     Dates: start: 20130315, end: 20130602

REACTIONS (1)
  - Abdominal pain [Not Recovered/Not Resolved]
